FAERS Safety Report 20132056 (Version 1)
Quarter: 2021Q4

REPORT INFORMATION
  Report Type: 
  Country: None (occurrence: None)
  Receive Date: 20211130
  Receipt Date: 20211130
  Transmission Date: 20220303
  Serious: Yes (Hospitalization, Other)
  Sender: FDA-Public Use
  Company Number: None

PATIENT
  Age: 70 Year
  Sex: Female

DRUGS (1)
  1. FERROUS SULFATE [Suspect]
     Active Substance: FERROUS SULFATE

REACTIONS (8)
  - Gastritis erosive [Unknown]
  - Dizziness [Unknown]
  - Fatigue [Unknown]
  - Melaena [Unknown]
  - Gastric ulcer [Unknown]
  - Oedema mucosal [Recovered/Resolved]
  - Duodenal ulcer haemorrhage [Unknown]
  - Chronic gastritis [Unknown]
